FAERS Safety Report 4309557-2 (Version None)
Quarter: 2004Q1

REPORT INFORMATION
  Report Type: 
  Country: None (occurrence: None)
  Receive Date: 20040301
  Receipt Date: 20040219
  Transmission Date: 20041129
  Serious: Yes (Hospitalization)
  Sender: FDA-Public Use
  Company Number: 2004-02-1431

PATIENT
  Sex: Female

DRUGS (3)
  1. PEG-INTRON [Suspect]
     Indication: HEPATITIS C
     Dosage: SUBCUTANEOUS
     Route: 058
     Dates: end: 20031201
  2. REBETOL [Suspect]
     Indication: HEPATITIS C
     Dosage: ORAL
     Route: 048
     Dates: end: 20031201
  3. IMMUNOSUPPRESSANT (NOS) FOR POST-LIVER TRANSPLANT [Concomitant]

REACTIONS (5)
  - CONVULSION [None]
  - ENCEPHALITIS VIRAL [None]
  - MOOD ALTERED [None]
  - NAUSEA [None]
  - VOMITING [None]
